FAERS Safety Report 15826612 (Version 1)
Quarter: 2019Q1

REPORT INFORMATION
  Report Type: Spontaneous
  Country: US (occurrence: US)
  Receive Date: 20190115
  Receipt Date: 20190115
  Transmission Date: 20190417
  Serious: No
  Sender: FDA-Public Use
  Company Number: US-PFIZER INC-2019015393

PATIENT
  Age: 52 Year
  Sex: Male
  Weight: 122.47 kg

DRUGS (1)
  1. IBUPROFEN. [Suspect]
     Active Substance: IBUPROFEN
     Indication: PAIN
     Dosage: UNK (TAKEN IBUPROFEN 4 TIMES)

REACTIONS (1)
  - Drug effect incomplete [Unknown]
